FAERS Safety Report 5219229-8 (Version None)
Quarter: 2007Q1

REPORT INFORMATION
  Report Type: 
  Country: None (occurrence: None)
  Receive Date: 20070125
  Receipt Date: 20070115
  Transmission Date: 20070707
  Serious: No
  Sender: FDA-Public Use
  Company Number: PHBS2007ES00704

PATIENT
  Age: 62 Year
  Sex: Male

DRUGS (1)
  1. ACLASTA [Suspect]
     Indication: OSTEITIS DEFORMANS
     Dosage: UNK, UNK
     Route: 065
     Dates: start: 20061001

REACTIONS (3)
  - ATRIAL FIBRILLATION [None]
  - INFLUENZA LIKE ILLNESS [None]
  - SINUS TACHYCARDIA [None]
